FAERS Safety Report 9840406 (Version 2)
Quarter: 2014Q1

REPORT INFORMATION
  Report Type: Spontaneous
  Country: IT (occurrence: IT)
  Receive Date: 20140124
  Receipt Date: 20140218
  Transmission Date: 20141002
  Serious: Yes (Hospitalization)
  Sender: FDA-Public Use
  Company Number: IT-SA-2014SA007544

PATIENT
  Age: 71 Year
  Sex: Male

DRUGS (6)
  1. KARVEA [Suspect]
     Indication: HYPERTENSION
     Route: 048
     Dates: start: 20130101, end: 20131116
  2. METFORMIN HYDROCHLORIDE [Concomitant]
  3. LANSOPRAZOLE [Concomitant]
  4. TORVAST [Concomitant]
  5. CARDIRENE [Concomitant]
  6. ALTIAZEM [Concomitant]

REACTIONS (1)
  - Pancreatitis acute [Recovering/Resolving]
